FAERS Safety Report 5400299-9 (Version None)
Quarter: 2007Q3

REPORT INFORMATION
  Report Type: 
  Country: None (occurrence: None)
  Receive Date: 20070730
  Receipt Date: 20070718
  Transmission Date: 20080115
  Serious: Yes (Life-Threatening)
  Sender: FDA-Public Use
  Company Number: GB-ROCHE-508333

PATIENT
  Age: 65 Year
  Sex: Female
  Weight: 123 kg

DRUGS (8)
  1. ORLISTAT [Suspect]
     Indication: OBESITY
     Route: 048
     Dates: start: 20060901, end: 20070518
  2. ORLISTAT [Suspect]
     Route: 048
     Dates: start: 20050101
  3. ASPIRIN [Concomitant]
     Route: 048
  4. LERCANIDIPINE [Concomitant]
  5. METFORMIN HCL [Concomitant]
  6. RAMIPRIL [Concomitant]
     Dates: start: 20070501
  7. SIMVASTATIN [Concomitant]
  8. INSULIN [Concomitant]

REACTIONS (1)
  - RENAL FAILURE [None]
